FAERS Safety Report 13355208 (Version 2)
Quarter: 2017Q2

REPORT INFORMATION
  Report Type: Report from Study
  Country: US (occurrence: US)
  Receive Date: 20170321
  Receipt Date: 20170601
  Transmission Date: 20170830
  Serious: Yes (Hospitalization, Other)
  Sender: FDA-Public Use
  Company Number: US-JNJFOC-20170318559

PATIENT
  Age: 71 Year
  Sex: Male
  Weight: 112 kg

DRUGS (21)
  1. PALBOCICLIB [Suspect]
     Active Substance: PALBOCICLIB
     Indication: MANTLE CELL LYMPHOMA
     Dosage: 100 MG, QD (DAYS 1-21 PER CYCLE)
     Route: 048
  2. ALLOPURINOL. [Concomitant]
     Active Substance: ALLOPURINOL
  3. METOPROLOL. [Concomitant]
     Active Substance: METOPROLOL
  4. ALFUZOSIN [Concomitant]
     Active Substance: ALFUZOSIN
  5. LEVOTHYROXINE. [Concomitant]
     Active Substance: LEVOTHYROXINE
  6. MONTELUKAST [Concomitant]
     Active Substance: MONTELUKAST SODIUM
  7. OXYMETAZOLINE [Concomitant]
     Active Substance: OXYMETAZOLINE
  8. POLYVINYL ALCOHOL W/POVIDONE [Concomitant]
  9. FAMOTIDINE. [Concomitant]
     Active Substance: FAMOTIDINE
  10. PALBOCICLIB [Suspect]
     Active Substance: PALBOCICLIB
     Indication: MANTLE CELL LYMPHOMA
     Dosage: 75 MG, QD (DAYS 1-21 PER CYCLE)
     Route: 048
     Dates: start: 20170301
  11. LOSARTAN. [Concomitant]
     Active Substance: LOSARTAN
  12. PALBOCICLIB [Suspect]
     Active Substance: PALBOCICLIB
     Indication: MANTLE CELL LYMPHOMA
     Dosage: 75 MG, QD (DAYS 1-21 PER CYCLE)
     Route: 048
     Dates: end: 20170211
  13. FUROSEMIDE. [Concomitant]
     Active Substance: FUROSEMIDE
  14. IBRUTINIB [Suspect]
     Active Substance: IBRUTINIB
     Indication: MANTLE CELL LYMPHOMA
     Dosage: 560 MG, QD
     Route: 048
     Dates: start: 20160708
  15. ASPIRIN. [Concomitant]
     Active Substance: ASPIRIN
  16. IBRUTINIB [Suspect]
     Active Substance: IBRUTINIB
     Indication: MANTLE CELL LYMPHOMA
     Route: 048
     Dates: start: 20170301
  17. IBRUTINIB [Suspect]
     Active Substance: IBRUTINIB
     Indication: MANTLE CELL LYMPHOMA
     Dosage: 420 MG, QD
     Route: 048
     Dates: end: 20170211
  18. PALBOCICLIB [Suspect]
     Active Substance: PALBOCICLIB
     Indication: MANTLE CELL LYMPHOMA
     Dosage: 125 MG, QD (DAYS 1-21 PER CYCLE)
     Route: 048
     Dates: start: 20160708
  19. PROCHLORPERAZINE. [Concomitant]
     Active Substance: PROCHLORPERAZINE
  20. TRAMADOL. [Concomitant]
     Active Substance: TRAMADOL
  21. MULTIVITAMINS [Concomitant]
     Active Substance: VITAMINS

REACTIONS (6)
  - Mental status changes [Recovering/Resolving]
  - Atrial fibrillation [Recovering/Resolving]
  - Epistaxis [Recovering/Resolving]
  - Facial bones fracture [Recovering/Resolving]
  - Transient ischaemic attack [Recovered/Resolved with Sequelae]
  - Fall [Recovering/Resolving]

NARRATIVE: CASE EVENT DATE: 20170210
